FAERS Safety Report 12707789 (Version 1)
Quarter: 2016Q3

REPORT INFORMATION
  Report Type: Spontaneous
  Country: JP (occurrence: JP)
  Receive Date: 20160901
  Receipt Date: 20160901
  Transmission Date: 20161109
  Serious: Yes (Death, Other)
  Sender: FDA-Public Use
  Company Number: JP-ELI_LILLY_AND_COMPANY-JP201607006948

PATIENT
  Age: 53 Year
  Sex: Male
  Weight: 36 kg

DRUGS (5)
  1. 5-FU                               /00098801/ [Concomitant]
     Active Substance: FLUOROURACIL
     Indication: GINGIVAL CANCER
     Dosage: UNK
     Dates: start: 201601
  2. ERBITUX [Suspect]
     Active Substance: CETUXIMAB
     Indication: GINGIVAL CANCER
     Dosage: UNK, UNKNOWN
     Route: 065
     Dates: start: 20150326
  3. ERBITUX [Suspect]
     Active Substance: CETUXIMAB
     Dosage: 350 MG, UNKNOWN
     Route: 065
  4. CDDP [Concomitant]
     Active Substance: CISPLATIN
     Indication: GINGIVAL CANCER
     Dosage: UNK
     Dates: start: 201601
  5. ERBITUX [Suspect]
     Active Substance: CETUXIMAB
     Dosage: 560 MG, UNKNOWN
     Route: 065
     Dates: start: 20160129

REACTIONS (4)
  - Interstitial lung disease [Fatal]
  - Pneumonia bacterial [Unknown]
  - Intestinal haemorrhage [Unknown]
  - Hypomagnesaemia [Unknown]
